FAERS Safety Report 10690722 (Version 2)
Quarter: 2015Q3

REPORT INFORMATION
  Report Type: Report from Study
  Country: JP (occurrence: JP)
  Receive Date: 20150105
  Receipt Date: 20150722
  Transmission Date: 20151125
  Serious: Yes (Hospitalization)
  Sender: FDA-Public Use
  Company Number: JP-TEVA-531448ISR

PATIENT
  Age: 48 Year
  Sex: Female

DRUGS (22)
  1. FILGRASTIM BS INJ. NK (FILGRASTIM [GENETICAL RECOMBINATION]) [Suspect]
     Active Substance: FILGRASTIM
     Dosage: 75 MICROGRAM DAILY;
     Route: 058
     Dates: start: 20140717, end: 20140718
  2. 5-FU (FLUOROURACIL) [Suspect]
     Active Substance: FLUOROURACIL
     Indication: BREAST CANCER
     Dosage: 742 MILLIGRAM DAILY;
     Route: 042
     Dates: start: 20140522, end: 20140522
  3. DECADRON [Concomitant]
     Active Substance: DEXAMETHASONE
     Dosage: 4 MILLIGRAM DAILY;
     Route: 048
     Dates: start: 20140522, end: 20140813
  4. EPIRUBICIN HYDROCHLORIDE. [Suspect]
     Active Substance: EPIRUBICIN HYDROCHLORIDE
     Indication: BREAST CANCER
     Dosage: 148 MILLIGRAM DAILY;
     Route: 042
     Dates: start: 20140522, end: 20140522
  5. ENDOXAN [Suspect]
     Active Substance: CYCLOPHOSPHAMIDE
     Dosage: 742 MILLIGRAM DAILY;
     Route: 042
     Dates: start: 20140731, end: 20140731
  6. RINESTERON [Concomitant]
     Dosage: 4 MILLIGRAM DAILY;
     Route: 048
     Dates: start: 20140523, end: 20140525
  7. ENDOXAN [Suspect]
     Active Substance: CYCLOPHOSPHAMIDE
     Dosage: 742 MILLIGRAM DAILY;
     Route: 042
     Dates: start: 20140703, end: 20140703
  8. EPIRUBICIN HYDROCHLORIDE. [Suspect]
     Active Substance: EPIRUBICIN HYDROCHLORIDE
     Dosage: 148 MILLIGRAM DAILY;
     Route: 042
     Dates: start: 20140703, end: 20140703
  9. 5-FU (FLUOROURACIL) [Suspect]
     Active Substance: FLUOROURACIL
     Dosage: 742 MILLIGRAM DAILY;
     Route: 042
     Dates: start: 20140612, end: 20140612
  10. FILGRASTIM BS INJ. NK (FILGRASTIM [GENETICAL RECOMBINATION]) [Suspect]
     Active Substance: FILGRASTIM
     Indication: NEUTROPENIA
     Dosage: 75 MICROGRAM DAILY;
     Route: 058
     Dates: start: 20140605, end: 20140606
  11. ENDOXAN [Suspect]
     Active Substance: CYCLOPHOSPHAMIDE
     Indication: BREAST CANCER
     Dosage: 742 MILLIGRAM DAILY;
     Route: 042
     Dates: start: 20140522, end: 20140522
  12. EPIRUBICIN HYDROCHLORIDE. [Suspect]
     Active Substance: EPIRUBICIN HYDROCHLORIDE
     Dosage: 148 MILLIGRAM DAILY;
     Route: 042
     Dates: start: 20140612, end: 20140612
  13. HERCEPTIN (GENETICAL RECOMBINATION) [Concomitant]
     Dosage: 204 MILLIGRAM DAILY;
     Route: 042
     Dates: start: 20140904, end: 20140904
  14. EPIRUBICIN HYDROCHLORIDE. [Suspect]
     Active Substance: EPIRUBICIN HYDROCHLORIDE
     Dosage: 148 MILLIGRAM DAILY;
     Route: 042
     Dates: start: 20140731, end: 20140731
  15. 5-FU (FLUOROURACIL) [Suspect]
     Active Substance: FLUOROURACIL
     Dosage: 742 MILLIGRAM DAILY;
     Route: 042
     Dates: start: 20140703, end: 20140703
  16. DEXART [Concomitant]
     Active Substance: DEXAMETHASONE SODIUM PHOSPHATE
     Dosage: 6.6 MILLIGRAM DAILY;
     Route: 042
     Dates: start: 20140522, end: 20140904
  17. FILGRASTIM BS INJ. NK (FILGRASTIM [GENETICAL RECOMBINATION]) [Suspect]
     Active Substance: FILGRASTIM
     Dosage: 75 MICROGRAM DAILY;
     Route: 058
     Dates: start: 20140626, end: 20140627
  18. FILGRASTIM BS INJ. NK (FILGRASTIM [GENETICAL RECOMBINATION]) [Suspect]
     Active Substance: FILGRASTIM
     Dosage: 75 MICROGRAM DAILY;
     Route: 058
     Dates: start: 20140814, end: 20140815
  19. 5-FU (FLUOROURACIL) [Suspect]
     Active Substance: FLUOROURACIL
     Dosage: 742 MILLIGRAM DAILY;
     Route: 042
     Dates: start: 20140731, end: 20140731
  20. DEXART [Concomitant]
     Active Substance: DEXAMETHASONE SODIUM PHOSPHATE
     Dosage: 1.65 MILLIGRAM DAILY;
     Route: 042
     Dates: start: 20140522, end: 20140904
  21. PACLITAXEL. [Concomitant]
     Active Substance: PACLITAXEL
     Dosage: 122 MILLIGRAM DAILY;
     Route: 042
     Dates: start: 20140904, end: 20140904
  22. ENDOXAN [Suspect]
     Active Substance: CYCLOPHOSPHAMIDE
     Dosage: 742 MILLIGRAM DAILY;
     Route: 042
     Dates: start: 20140612, end: 20140612

REACTIONS (1)
  - Interstitial lung disease [Recovering/Resolving]

NARRATIVE: CASE EVENT DATE: 20140711
